FAERS Safety Report 16056289 (Version 1)
Quarter: 2019Q1

REPORT INFORMATION
  Report Type: Report from Study
  Country: None (occurrence: CA)
  Receive Date: 20190311
  Receipt Date: 20190311
  Transmission Date: 20190418
  Serious: Yes (Death)
  Sender: FDA-Public Use
  Company Number: CA-ABBVIE-19S-028-2699654-00

PATIENT
  Age: 83 Year
  Sex: Male

DRUGS (2)
  1. HYDROMORPHONE CONTIN [Concomitant]
     Active Substance: HYDROMORPHONE HYDROCHLORIDE
     Indication: PRODUCT USED FOR UNKNOWN INDICATION
     Dosage: 5-6 PER DAY
  2. LUPRON DEPOT [Suspect]
     Active Substance: LEUPROLIDE ACETATE
     Indication: PROSTATE CANCER
     Route: 030
     Dates: start: 20180327, end: 20181122

REACTIONS (1)
  - Death [Fatal]

NARRATIVE: CASE EVENT DATE: 20190228
